FAERS Safety Report 12376939 (Version 1)
Quarter: 2016Q2

REPORT INFORMATION
  Report Type: Report from Study
  Country: US (occurrence: US)
  Receive Date: 20160517
  Receipt Date: 20160517
  Transmission Date: 20160815
  Serious: No
  Sender: FDA-Public Use
  Company Number: US-MALLINCKRODT-T201503886

PATIENT
  Sex: Female

DRUGS (1)
  1. REPOSITORY CORTICOTROPIN INJECTION [Suspect]
     Active Substance: CORTICOTROPIN
     Indication: RHEUMATOID ARTHRITIS
     Dosage: 80 UNITS, 2X A WEEK
     Route: 058
     Dates: start: 20150622, end: 20150819

REACTIONS (4)
  - Drug ineffective [Unknown]
  - Injection site erythema [Unknown]
  - Injection site warmth [Unknown]
  - Peripheral swelling [Unknown]
